FAERS Safety Report 6601033-7 (Version None)
Quarter: 2010Q1

REPORT INFORMATION
  Report Type: 
  Country: None (occurrence: None)
  Receive Date: 20100225
  Receipt Date: 20100216
  Transmission Date: 20100710
  Serious: Yes (Hospitalization)
  Sender: FDA-Public Use
  Company Number: US-JNJFOC-20100207755

PATIENT
  Sex: Male
  Weight: 58.97 kg

DRUGS (4)
  1. DURAGESIC-100 [Suspect]
     Indication: BACK PAIN
     Route: 062
  2. DURAGESIC-100 [Suspect]
     Dosage: 100UG/HR+25UG/HR=125UG/HR
     Route: 062
  3. SELENIUM [Concomitant]
     Indication: NUTRITIONAL SUPPORT
     Route: 048
  4. SOMA [Concomitant]
     Indication: MYALGIA
     Route: 048

REACTIONS (8)
  - ABASIA [None]
  - DEPRESSION [None]
  - INTERVERTEBRAL DISC INJURY [None]
  - INTERVERTEBRAL DISC PROTRUSION [None]
  - MALAISE [None]
  - MYOCARDIAL INFARCTION [None]
  - PRODUCT QUALITY ISSUE [None]
  - WITHDRAWAL SYNDROME [None]
